FAERS Safety Report 17723005 (Version 1)
Quarter: 2020Q2

REPORT INFORMATION
  Report Type: Spontaneous
  Country: US (occurrence: US)
  Receive Date: 20200428
  Receipt Date: 20200428
  Transmission Date: 20200714
  Serious: Yes (Hospitalization)
  Sender: FDA-Public Use
  Company Number: None

PATIENT
  Age: 35 Year
  Sex: Male

DRUGS (10)
  1. PROCHLORPERAZINE. [Concomitant]
     Active Substance: PROCHLORPERAZINE
  2. ELIQUIS [Concomitant]
     Active Substance: APIXABAN
  3. AMLODIPINE [Concomitant]
     Active Substance: AMLODIPINE BESYLATE
  4. ATROVASTATIN [Concomitant]
     Active Substance: ATORVASTATIN CALCIUM
  5. ZYTIGA [Suspect]
     Active Substance: ABIRATERONE ACETATE
     Indication: PROSTATE CANCER
     Route: 048
  6. TAMSULOSIN [Concomitant]
     Active Substance: TAMSULOSIN
  7. METAPROLOL [Concomitant]
     Active Substance: METOPROLOL
  8. PREDNISONE. [Concomitant]
     Active Substance: PREDNISONE
  9. ZOFRAN [Concomitant]
     Active Substance: ONDANSETRON HYDROCHLORIDE
  10. FAMOTIDINE. [Concomitant]
     Active Substance: FAMOTIDINE

REACTIONS (1)
  - Blood sodium decreased [None]
